FAERS Safety Report 8635328 (Version 3)
Quarter: 2013Q1

REPORT INFORMATION
  Report Type: Spontaneous
  Country: GB (occurrence: None)
  Receive Date: 20120613
  Receipt Date: 20121005
  Transmission Date: 20140127
  Serious: Yes (Hospitalization)
  Sender: FDA-Public Use
  Company Number: 217672

PATIENT
  Age: 37 Year
  Sex: Female
  Weight: 83 kg

DRUGS (7)
  1. INNOHEP [Suspect]
     Indication: DEEP VEIN THROMBOSIS
     Dosage: (0.3 ML), SUBCUTANEOUS
     Route: 058
     Dates: start: 20120515, end: 20120515
  2. IBUPROFEN (IBUPROFEN) [Concomitant]
  3. METRONIDAZOLE (METRONIDAZOLE) [Concomitant]
  4. QVAR [Concomitant]
  5. SERTRALINE (SERTRALINE) (SERTRALINE) [Concomitant]
  6. VENTOLIN [Concomitant]
  7. YASMIN [Concomitant]

REACTIONS (7)
  - Infusion site erythema [None]
  - Infusion related reaction [None]
  - Hypertension [None]
  - Tremor [None]
  - Back pain [None]
  - Paraesthesia [None]
  - Feeling cold [None]
